FAERS Safety Report 19499617 (Version 1)
Quarter: 2021Q3

REPORT INFORMATION
  Report Type: Report from Study
  Country: US (occurrence: US)
  Receive Date: 20210706
  Receipt Date: 20210706
  Transmission Date: 20211014
  Serious: Yes (Death, Hospitalization)
  Sender: FDA-Public Use
  Company Number: US-CELGENEUS-USA-20210608260

PATIENT
  Age: 80 Year
  Sex: Male

DRUGS (2)
  1. AZACITIDINE. [Suspect]
     Active Substance: AZACITIDINE
     Indication: ACUTE MYELOID LEUKAEMIA
     Dosage: 142 MILLIGRAM
     Route: 041
     Dates: start: 20180206, end: 20180330
  2. AZACITIDINE. [Suspect]
     Active Substance: AZACITIDINE
     Indication: MYELODYSPLASTIC SYNDROME

REACTIONS (4)
  - Bacteraemia [Unknown]
  - Febrile neutropenia [Unknown]
  - Febrile neutropenia [Unknown]
  - Death [Fatal]

NARRATIVE: CASE EVENT DATE: 20180308
